FAERS Safety Report 6160116-9 (Version None)
Quarter: 2009Q2

REPORT INFORMATION
  Report Type: 
  Country: None (occurrence: None)
  Receive Date: 20090420
  Receipt Date: 20090410
  Transmission Date: 20091009
  Serious: Yes (Hospitalization)
  Sender: FDA-Public Use
  Company Number: A0563820A

PATIENT
  Age: 71 Year
  Sex: Male
  Weight: 63.6 kg

DRUGS (3)
  1. AVANDIA [Suspect]
     Dosage: 8MG PER DAY
     Route: 048
     Dates: start: 20050501
  2. AVANDAMET [Suspect]
     Route: 048
     Dates: start: 20041001, end: 20070101
  3. METFORMIN HCL [Concomitant]

REACTIONS (4)
  - CARDIAC FAILURE CONGESTIVE [None]
  - DIABETES MELLITUS INADEQUATE CONTROL [None]
  - MYOCARDIAL INFARCTION [None]
  - RESPIRATORY FAILURE [None]
